FAERS Safety Report 5514828-8 (Version None)
Quarter: 2007Q4

REPORT INFORMATION
  Report Type: 
  Country: None (occurrence: None)
  Receive Date: 20071109
  Receipt Date: 20071026
  Transmission Date: 20080405
  Serious: Yes (Other)
  Sender: FDA-Public Use
  Company Number: 020049

PATIENT
  Age: 84 Year
  Sex: Male

DRUGS (3)
  1. HYDROXYZINE [Suspect]
     Indication: PRURITUS
     Dosage: 6.25 - 12.5 MG PRN, ORAL
     Route: 048
  2. LUPRON [Concomitant]
  3. DOXYCILIN (DOXYCYCLINE HYDROCHLORIDE) [Concomitant]

REACTIONS (5)
  - BASAL CELL CARCINOMA [None]
  - DRY SKIN [None]
  - SOMNOLENCE [None]
  - SQUAMOUS CELL CARCINOMA [None]
  - STAPHYLOCOCCAL INFECTION [None]
